FAERS Safety Report 17724139 (Version 10)
Quarter: 2020Q2

REPORT INFORMATION
  Report Type: Report from Study
  Country: IN (occurrence: IN)
  Receive Date: 20200429
  Receipt Date: 20200629
  Transmission Date: 20200714
  Serious: Yes (Other)
  Sender: FDA-Public Use
  Company Number: NVSC2020IN091169

PATIENT
  Age: 61 Year
  Sex: Male
  Weight: 81 kg

DRUGS (2)
  1. GALVUS MET [Suspect]
     Active Substance: METFORMIN HYDROCHLORIDE\VILDAGLIPTIN
     Dosage: 1 DF (METFORMIN 1000 MG/ VILDAGLIPTIN 50 MG), BID, (1-0-1)
     Route: 048
  2. GALVUS MET [Suspect]
     Active Substance: METFORMIN HYDROCHLORIDE\VILDAGLIPTIN
     Indication: DIABETES MELLITUS
     Dosage: 1 DF, QD, (0-0-1)
     Route: 048
     Dates: start: 2016

REACTIONS (17)
  - Hyperglycaemia [Unknown]
  - Blood glucose fluctuation [Not Recovered/Not Resolved]
  - Pain in extremity [Not Recovered/Not Resolved]
  - Mobility decreased [Unknown]
  - Back pain [Not Recovered/Not Resolved]
  - Inflammation [Unknown]
  - Blood cholesterol increased [Unknown]
  - Gastric disorder [Unknown]
  - Swelling [Unknown]
  - Weight increased [Unknown]
  - Headache [Unknown]
  - Scratch [Unknown]
  - Hunger [Unknown]
  - Asthenia [Unknown]
  - Irritability [Unknown]
  - Haemorrhoids [Unknown]
  - Urinary retention [Unknown]

NARRATIVE: CASE EVENT DATE: 20200315
